FAERS Safety Report 6535424-X (Version None)
Quarter: 2009Q4

REPORT INFORMATION
  Report Type: 
  Country: None (occurrence: None)
  Receive Date: 20091228
  Receipt Date: 20090430
  Transmission Date: 20100525
  Serious: Yes (Life-Threatening)
  Sender: FDA-Public Use
  Company Number: US-002831

PATIENT
  Age: 51 Year
  Sex: Female
  Weight: 84 kg

DRUGS (5)
  1. MULTIHANCE [Suspect]
     Indication: HEADACHE
     Dosage: 10ML QD INTRAVENOUS
     Route: 042
     Dates: start: 20090401, end: 20090401
  2. MULTIHANCE [Suspect]
     Indication: NAUSEA
     Dosage: 10ML QD INTRAVENOUS
     Route: 042
     Dates: start: 20090401, end: 20090401
  3. MULTIHANCE [Suspect]
     Indication: NUCLEAR MAGNETIC RESONANCE IMAGING BRAIN
     Dosage: 10ML QD INTRAVENOUS
     Route: 042
     Dates: start: 20090401, end: 20090401
  4. TOPAMAX [Concomitant]
  5. LISINOPRIL [Concomitant]

REACTIONS (1)
  - HYPERSENSITIVITY [None]
